FAERS Safety Report 10311037 (Version 1)
Quarter: 2014Q3

REPORT INFORMATION
  Report Type: Spontaneous
  Country: GB (occurrence: None)
  Receive Date: 20140715
  Receipt Date: 20140715
  Transmission Date: 20150326
  Serious: Yes (Other)
  Sender: FDA-Public Use
  Company Number: AUR-APL-2014-07374

PATIENT
  Age: 43 Year
  Sex: Female

DRUGS (6)
  1. CITALOPRAM 20MG (CITALOPRAM) UNKNOWN, 20MG [Suspect]
     Active Substance: CITALOPRAM HYDROBROMIDE
     Indication: STRESS
     Dosage: OFF AND ON
     Route: 048
  2. CITALOPRAM 20MG (CITALOPRAM) UNKNOWN, 20MG [Suspect]
     Active Substance: CITALOPRAM HYDROBROMIDE
     Indication: ANXIETY
     Dosage: OFF AND ON
     Route: 048
  3. CITALOPRAM 20MG (CITALOPRAM) UNKNOWN, 20MG [Suspect]
     Active Substance: CITALOPRAM HYDROBROMIDE
     Indication: ABNORMAL BEHAVIOUR
     Dosage: OFF AND ON
     Route: 048
  4. CITALOPRAM 20MG (CITALOPRAM) UNKNOWN, 20MG [Suspect]
     Active Substance: CITALOPRAM HYDROBROMIDE
     Indication: AMNESIA
     Dosage: OFF AND ON
     Route: 048
  5. CITALOPRAM 20MG (CITALOPRAM) UNKNOWN, 20MG [Suspect]
     Active Substance: CITALOPRAM HYDROBROMIDE
     Indication: MEMORY IMPAIRMENT
     Dosage: OFF AND ON
     Route: 048
  6. CITALOPRAM 20MG (CITALOPRAM) UNKNOWN, 20MG [Suspect]
     Active Substance: CITALOPRAM HYDROBROMIDE
     Indication: CONFUSIONAL STATE
     Dosage: OFF AND ON
     Route: 048

REACTIONS (3)
  - Amnesia [None]
  - Stress at work [None]
  - Confusional state [None]

NARRATIVE: CASE EVENT DATE: 201312
